FAERS Safety Report 14745739 (Version 2)
Quarter: 2018Q2

REPORT INFORMATION
  Report Type: Report from Study
  Country: DE (occurrence: DE)
  Receive Date: 20180411
  Receipt Date: 20180507
  Transmission Date: 20180711
  Serious: Yes (Hospitalization, Other)
  Sender: FDA-Public Use
  Company Number: PHHY2018DE056281

PATIENT
  Sex: Male
  Weight: 68.8 kg

DRUGS (2)
  1. ENTRESTO [Suspect]
     Active Substance: SACUBITRIL\VALSARTAN
     Indication: CARDIAC FAILURE CHRONIC
     Dosage: UNK
     Route: 048
     Dates: start: 201709, end: 201709
  2. TORASEMID 1A PHARMA [Suspect]
     Active Substance: TORSEMIDE
     Indication: CARDIAC FAILURE CHRONIC
     Dosage: 10 MG, QD
     Route: 048
     Dates: start: 2014

REACTIONS (13)
  - Insomnia [Unknown]
  - Syncope [Unknown]
  - Hypotension [Not Recovered/Not Resolved]
  - Pollakiuria [Unknown]
  - Loss of consciousness [Unknown]
  - Nocturia [Unknown]
  - Peripheral swelling [Unknown]
  - Oedema peripheral [Unknown]
  - Drug ineffective [Unknown]
  - Malignant melanoma [Recovered/Resolved]
  - Oedema [Unknown]
  - Weight increased [Unknown]
  - Malaise [Not Recovered/Not Resolved]

NARRATIVE: CASE EVENT DATE: 2014
